FAERS Safety Report 14669787 (Version 2)
Quarter: 2019Q2

REPORT INFORMATION
  Report Type: Spontaneous
  Country: None (occurrence: US)
  Receive Date: 20180322
  Receipt Date: 20190412
  Transmission Date: 20190711
  Serious: No
  Sender: FDA-Public Use
  Company Number: US-GLAXOSMITHKLINE-US2018047668

PATIENT
  Age: 38 Year
  Sex: Female

DRUGS (3)
  1. NABUMETONE. [Concomitant]
     Active Substance: NABUMETONE
  2. PLAQUENIL [Concomitant]
     Active Substance: HYDROXYCHLOROQUINE SULFATE
  3. BENLYSTA [Suspect]
     Active Substance: BELIMUMAB
     Indication: SYSTEMIC LUPUS ERYTHEMATOSUS
     Dosage: 200 MG, CYC
     Route: 058
     Dates: start: 20180222

REACTIONS (8)
  - Rash [Recovered/Resolved]
  - Nasal pruritus [Unknown]
  - Pruritus generalised [Recovered/Resolved]
  - Erythema [Unknown]
  - Hypersensitivity [Recovered/Resolved]
  - Ear swelling [Recovered/Resolved]
  - Nasal oedema [Recovered/Resolved]
  - Flushing [Recovered/Resolved]

NARRATIVE: CASE EVENT DATE: 20180222
